FAERS Safety Report 16996995 (Version 1)
Quarter: 2019Q4

REPORT INFORMATION
  Report Type: Spontaneous
  Country: US (occurrence: US)
  Receive Date: 20190923
  Receipt Date: 20190923
  Transmission Date: 20200122
  Serious: Yes (Hospitalization)
  Sender: FDA-Public Use
  Company Number: None

PATIENT
  Age: 86 Year
  Sex: Male
  Weight: 84.05 kg

DRUGS (1)
  1. FENTANYL. [Suspect]
     Active Substance: FENTANYL
     Indication: INGUINAL HERNIA REPAIR
     Route: 042
     Dates: start: 20190409, end: 20190409

REACTIONS (2)
  - Urinary retention [None]
  - Sedation [None]

NARRATIVE: CASE EVENT DATE: 20190409
